FAERS Safety Report 9879481 (Version 1)
Quarter: 2014Q1

REPORT INFORMATION
  Report Type: Spontaneous
  Country: JP (occurrence: JP)
  Receive Date: 20140206
  Receipt Date: 20140206
  Transmission Date: 20141002
  Serious: Yes (Other)
  Sender: FDA-Public Use
  Company Number: JP-TEVA-458418ISR

PATIENT
  Age: 82 Year
  Sex: Male
  Weight: 60.2 kg

DRUGS (13)
  1. PRINK,INJ,10MICROG,2ML [Suspect]
     Dosage: 10 MICROGRAM DAILY;
     Route: 042
     Dates: start: 20131217, end: 20131224
  2. VANCOMYCIN [Suspect]
     Dosage: 1500 MILLIGRAM DAILY;
     Route: 042
     Dates: start: 20131212, end: 20131224
  3. VANCOMYCIN [Suspect]
     Dosage: 1400 MILLIGRAM DAILY;
     Route: 042
     Dates: start: 20131231
  4. AMIPHARGEN P INJECTION [Suspect]
     Dosage: 40 ML DAILY;
     Route: 042
     Dates: start: 20131217, end: 20131223
  5. MEROPENEM [Concomitant]
     Route: 041
  6. GASPORT-D [Concomitant]
  7. EPADEL S [Concomitant]
  8. CRESTOR [Concomitant]
  9. TAKEPRON OD TABLETS 15 [Concomitant]
  10. PLAVIX [Concomitant]
  11. BAYASPIRIN 100MG [Concomitant]
  12. PLETAAL OD TABLETS 100MG [Concomitant]
  13. MAINTATE TABLETS 0.625MG [Concomitant]

REACTIONS (3)
  - Liver disorder [Recovering/Resolving]
  - Aspartate aminotransferase increased [Recovering/Resolving]
  - Alanine aminotransferase increased [Recovering/Resolving]
